FAERS Safety Report 16821299 (Version 3)
Quarter: 2023Q2

REPORT INFORMATION
  Report Type: Spontaneous
  Country: IR (occurrence: IR)
  Receive Date: 20190918
  Receipt Date: 20230628
  Transmission Date: 20230722
  Serious: Yes (Death, Hospitalization, Other)
  Sender: FDA-Public Use
  Company Number: IR-SA-2019SA257883

PATIENT
  Age: 10 Month
  Sex: Male
  Weight: 5.8 kg

DRUGS (1)
  1. MYOZYME [Suspect]
     Active Substance: ALGLUCOSIDASE ALFA
     Indication: Glycogen storage disease type II
     Dosage: 3 VIALS, 150 MG (3 VIALS/EACH VIAL IS 50 MG)UNK
     Route: 041
     Dates: start: 20180115, end: 20190912

REACTIONS (8)
  - Cardiac failure [Fatal]
  - Pneumonia [Fatal]
  - Asthenia [Fatal]
  - Failure to thrive [Fatal]
  - Loss of consciousness [Unknown]
  - Hypoxia [Unknown]
  - Lethargy [Unknown]
  - Malaise [Unknown]

NARRATIVE: CASE EVENT DATE: 20190914
